FAERS Safety Report 8428673-7 (Version None)
Quarter: 2012Q2

REPORT INFORMATION
  Report Type: 
  Country: None (occurrence: None)
  Receive Date: 20120612
  Receipt Date: 20120607
  Transmission Date: 20120825
  Serious: No
  Sender: FDA-Public Use
  Company Number: US-PFIZER INC-2012137719

PATIENT
  Sex: Female
  Weight: 96 kg

DRUGS (23)
  1. HYDROCHLOROTHIAZIDE [Concomitant]
     Indication: HYPERTENSION
     Dosage: 12.5 MG, 1X/DAY
  2. CYMBALTA [Concomitant]
     Indication: DEPRESSION
  3. MUCINEX DM [Concomitant]
     Indication: COUGH
     Dosage: UNK, 2X/DAY
  4. HYDROCODONE [Concomitant]
     Indication: PAIN IN EXTREMITY
  5. TRAZODONE [Concomitant]
     Indication: DEPRESSION
  6. FIBERCON [Concomitant]
     Indication: CONSTIPATION
     Dosage: 625 MG, 2X/DAY
  7. LISINOPRIL [Concomitant]
     Indication: HYPERTENSION
     Dosage: 40 MG, 1X/DAY
  8. LANTUS [Concomitant]
     Indication: DIABETES MELLITUS
     Dosage: 100 IU, 1X/DAY
  9. LYRICA [Suspect]
     Indication: NEURALGIA
     Dosage: 75 MG, 2X/DAY
     Route: 048
     Dates: start: 20090101
  10. PROAIR HFA [Concomitant]
     Dosage: 90 UG, AS NEEDED
  11. CYMBALTA [Concomitant]
     Indication: PAIN
     Dosage: 75 MG, 1X/DAY
  12. METFORMIN [Concomitant]
     Indication: DIABETES MELLITUS
     Dosage: 1000 MG, 2X/DAY
  13. LOVAZA [Concomitant]
     Dosage: UNK, 1X/DAY
  14. OMEPRAZOLE [Concomitant]
     Indication: GASTROOESOPHAGEAL REFLUX DISEASE
     Dosage: 20 MG, 2X/DAY
  15. CIPROFLOXACIN [Concomitant]
     Indication: CYST
     Dosage: 250 MG, 1X/DAY
  16. VESICARE [Concomitant]
     Indication: URINARY INCONTINENCE
     Dosage: 10 MG, 1X/DAY
  17. NOVOLOG [Concomitant]
     Indication: DIABETES MELLITUS
     Dosage: 30 IU IN MORNING AND 20 IU AT NIGHT
  18. SPIRIVA [Concomitant]
     Indication: CHRONIC OBSTRUCTIVE PULMONARY DISEASE
     Dosage: 18 UG, 1X/DAY
  19. HYDROCODONE [Concomitant]
     Indication: BACK PAIN
     Dosage: 250 MG, 3X/DAY
  20. TRAZODONE [Concomitant]
     Indication: SLEEP DISORDER
     Dosage: 75 MG, 1X/DAY
  21. LYRICA [Suspect]
     Dosage: 75 MG, 3X/DAY
     Route: 048
  22. VICTOZA [Concomitant]
     Indication: DIABETES MELLITUS
     Dosage: 1.8 IU, 1X/DAY
  23. SIMVASTATIN [Concomitant]
     Indication: BLOOD CHOLESTEROL ABNORMAL
     Dosage: 40 MG, 1X/DAY

REACTIONS (6)
  - CONFUSIONAL STATE [None]
  - PAIN IN EXTREMITY [None]
  - SOMNOLENCE [None]
  - DYSSTASIA [None]
  - DIZZINESS [None]
  - DISTURBANCE IN ATTENTION [None]
